FAERS Safety Report 6271627-X (Version None)
Quarter: 2009Q3

REPORT INFORMATION
  Report Type: 
  Country: None (occurrence: None)
  Receive Date: 20090717
  Receipt Date: 20071008
  Transmission Date: 20100115
  Serious: Yes (Other)
  Sender: FDA-Public Use
  Company Number: US-ASTRAZENECA-2006UW23049

PATIENT
  Age: 58 Year
  Sex: Female
  Weight: 85.7 kg

DRUGS (25)
  1. SEROQUEL [Suspect]
     Indication: DEPRESSION
     Route: 048
     Dates: start: 20020101, end: 20050101
  2. SEROQUEL [Suspect]
     Indication: SLEEP DISORDER
     Route: 048
     Dates: start: 20020101, end: 20050101
  3. SEROQUEL [Suspect]
     Route: 048
     Dates: start: 20040322
  4. SEROQUEL [Suspect]
     Route: 048
     Dates: start: 20040322
  5. REMERON [Concomitant]
     Indication: SLEEP DISORDER
     Dosage: STRENGTH-30 MG, 45 MG DOSE-30-45 MG
     Dates: start: 20020418
  6. LOVASTATIN [Concomitant]
     Dates: start: 20070903
  7. FOLIC ACID [Concomitant]
     Dates: start: 20020418
  8. THIAMINE HCL [Concomitant]
     Dates: start: 20070903
  9. PERCOCET [Concomitant]
     Dates: start: 20070903
  10. XANAX [Concomitant]
     Dates: start: 20070903
  11. FOSAMAX [Concomitant]
     Dosage: 70 MILLIGRAMS WEEKLY
     Dates: start: 20070903
  12. NAMENDA [Concomitant]
     Dates: start: 20070903
  13. PROTONIX [Concomitant]
     Dates: start: 20070903
  14. TOPROL-XL [Concomitant]
     Dates: start: 20070903
  15. ALTACE [Concomitant]
     Dates: start: 20070903
  16. ACCUPRIL [Concomitant]
     Dates: start: 20060822
  17. ALBUTEROL [Concomitant]
     Dates: start: 20020418
  18. ALLEGRA [Concomitant]
     Dates: start: 20060822
  19. AMBIEN [Concomitant]
     Dates: start: 20060712
  20. ATENOLOL [Concomitant]
     Route: 048
     Dates: start: 20020418
  21. CLONIDINE [Concomitant]
     Dates: start: 20060822
  22. FELODIPINE [Concomitant]
     Dates: start: 20060822
  23. LIPITOR [Concomitant]
     Dates: start: 20050113
  24. SPIRIVA [Concomitant]
     Dates: start: 20060822
  25. ZYRTEC [Concomitant]
     Dates: start: 20020418

REACTIONS (3)
  - COLON CANCER [None]
  - DIABETES MELLITUS [None]
  - TYPE 2 DIABETES MELLITUS [None]
